FAERS Safety Report 9257094 (Version 1)
Quarter: 2013Q1

REPORT INFORMATION
  Report Type: Spontaneous
  Country: US (occurrence: None)
  Receive Date: 20121212
  Receipt Date: 20121212
  Transmission Date: 20140127
  Serious: No
  Sender: FDA-Public Use
  Company Number: 1207USA002685

PATIENT
  Age: 63 Year
  Sex: Male
  Weight: 93.44 kg

DRUGS (4)
  1. VICTRELIS (BOCEPREVIR) CAPSULES [Suspect]
     Indication: HEPATITIS C
     Dosage: UNK, UNK, UNKNOWN
     Dates: start: 201201
  2. PEGINTRON (PEGINTERFERON ALFA 2B) POWDER FOR INJECTION [Suspect]
     Dosage: 150 MICROGRAM, UNKNOWN
     Dates: start: 201212
  3. RIBASPHERE (RIBAVIRIN) [Concomitant]
  4. PROCRIT [Concomitant]

REACTIONS (2)
  - Psoriasis [None]
  - Rash [None]
